FAERS Safety Report 9689401 (Version 1)
Quarter: 2013Q4

REPORT INFORMATION
  Report Type: Spontaneous
  Country: US (occurrence: US)
  Receive Date: 20131114
  Receipt Date: 20131114
  Transmission Date: 20140711
  Serious: Yes (Hospitalization)
  Sender: FDA-Public Use
  Company Number: PHHY2013US128635

PATIENT
  Age: 14 Year
  Sex: Male

DRUGS (3)
  1. METHADONE [Suspect]
  2. PARACETAMOL [Suspect]
  3. CAFFEINE [Suspect]

REACTIONS (7)
  - Leukoencephalopathy [Recovering/Resolving]
  - Unresponsive to stimuli [Recovering/Resolving]
  - Paresis [Recovering/Resolving]
  - Dystonia [Recovering/Resolving]
  - Decerebrate posture [Recovering/Resolving]
  - Muscle spasms [Recovering/Resolving]
  - Intentional drug misuse [Recovering/Resolving]
